FAERS Safety Report 7029453-X (Version None)
Quarter: 2010Q4

REPORT INFORMATION
  Report Type: 
  Country: None (occurrence: None)
  Receive Date: 20101005
  Receipt Date: 20100927
  Transmission Date: 20110411
  Serious: Yes (Other)
  Sender: FDA-Public Use
  Company Number: US-AMGEN-QUU441593

PATIENT
  Sex: Male

DRUGS (4)
  1. NPLATE [Suspect]
     Indication: IDIOPATHIC THROMBOCYTOPENIC PURPURA
     Dates: start: 20080930, end: 20090725
  2. RITUXIMAB [Concomitant]
     Dates: start: 20071201
  3. INSULIN GLARGINE [Concomitant]
  4. INSULIN ASPART [Concomitant]

REACTIONS (3)
  - DIARRHOEA HAEMORRHAGIC [None]
  - RECTAL HAEMORRHAGE [None]
  - RHINORRHOEA [None]
